FAERS Safety Report 7345167-0 (Version None)
Quarter: 2011Q1

REPORT INFORMATION
  Report Type: 
  Country: None (occurrence: None)
  Receive Date: 20110310
  Receipt Date: 20110225
  Transmission Date: 20110831
  Serious: Yes (Other)
  Sender: FDA-Public Use
  Company Number: US-BAYER-2011-021555

PATIENT
  Sex: Female

DRUGS (17)
  1. MECLIZINE [Concomitant]
     Dosage: UNK
     Dates: start: 20090801
  2. ONDANSETRON [Concomitant]
     Dosage: UNK
     Dates: start: 20090809
  3. ACETAZOLAMIDE [Concomitant]
     Dosage: UNK
     Dates: start: 20091008
  4. YAZ [Suspect]
     Indication: PRODUCT USED FOR UNKNOWN INDICATION
     Route: 048
  5. LORAZEPAM [Concomitant]
     Dosage: UNK
     Dates: start: 20090723
  6. METHYLPREDNISOLONE [Concomitant]
  7. PROMETHAZINE [Concomitant]
     Dosage: UNK
  8. METOPROLOL SUCCINATE [Concomitant]
     Dosage: UNK
     Dates: start: 20090814
  9. LORAZEPAM [Concomitant]
     Dosage: UNK
     Dates: start: 20090808
  10. FLUTICASONE PROPIONATE [Concomitant]
     Dosage: UNK
     Route: 055
     Dates: start: 20090922
  11. SINGULAIR [Concomitant]
     Dosage: UNK
     Dates: start: 20090922
  12. LORAZEPAM [Concomitant]
     Dosage: UNK
     Dates: start: 20090808
  13. AZITHROMYCIN [Concomitant]
     Dosage: UNK
     Dates: start: 20091012
  14. YASMIN [Suspect]
     Indication: PRODUCT USED FOR UNKNOWN INDICATION
     Route: 048
  15. ATENOLOL [Concomitant]
     Dosage: UNK
     Dates: start: 20090902
  16. XYZAL [Concomitant]
  17. UNCODEABLE ^UNCLASSIFIABLE^ [Concomitant]
     Dosage: UNK
     Dates: start: 20100526

REACTIONS (4)
  - TACHYCARDIA [None]
  - BENIGN INTRACRANIAL HYPERTENSION [None]
  - PALPITATIONS [None]
  - POLYCYSTIC OVARIES [None]
